FAERS Safety Report 10479058 (Version 1)
Quarter: 2014Q3

REPORT INFORMATION
  Report Type: Report from Study
  Country: GB (occurrence: GB)
  Receive Date: 20140926
  Receipt Date: 20140926
  Transmission Date: 20150326
  Serious: Yes (Death)
  Sender: FDA-Public Use
  Company Number: GB-ABBVIE-14K-167-1287813-00

PATIENT
  Sex: Female
  Weight: 71 kg

DRUGS (1)
  1. HUMIRA [Suspect]
     Active Substance: ADALIMUMAB
     Indication: RHEUMATOID ARTHRITIS
     Route: 058
     Dates: start: 20060610, end: 20091015

REACTIONS (5)
  - Rheumatoid arthritis [Fatal]
  - Sepsis [Fatal]
  - Bronchopneumonia [Fatal]
  - Cerebrovascular accident [Fatal]
  - Cerebral artery embolism [Fatal]
